FAERS Safety Report 7338766-3 (Version None)
Quarter: 2011Q1

REPORT INFORMATION
  Report Type: 
  Country: None (occurrence: None)
  Receive Date: 20110308
  Receipt Date: 20110302
  Transmission Date: 20110831
  Serious: Yes (Death)
  Sender: FDA-Public Use
  Company Number: PHHY2011JP17449

PATIENT
  Age: 81 Year
  Sex: Male

DRUGS (1)
  1. GLEEVEC [Suspect]
     Indication: CHRONIC MYELOID LEUKAEMIA
     Route: 048

REACTIONS (4)
  - CONCOMITANT DISEASE AGGRAVATED [None]
  - LYMPHOMA [None]
  - NEOPLASM MALIGNANT [None]
  - BLAST CRISIS IN MYELOGENOUS LEUKAEMIA [None]
